FAERS Safety Report 7368133-8 (Version None)
Quarter: 2011Q1

REPORT INFORMATION
  Report Type: 
  Country: None (occurrence: None)
  Receive Date: 20110323
  Receipt Date: 20110314
  Transmission Date: 20110831
  Serious: No
  Sender: FDA-Public Use
  Company Number: US-PFIZER INC-2011061361

PATIENT
  Age: 5 Year
  Sex: Male
  Weight: 18.141 kg

DRUGS (2)
  1. ACETAMINOPHEN [Suspect]
  2. CHILDREN'S MOTRIN [Suspect]
     Indication: MALAISE
     Dosage: 150 MG, 1X/DAY (1.5 TSP)
     Route: 048
     Dates: end: 20110202

REACTIONS (7)
  - PHARYNGEAL ERYTHEMA [None]
  - PYREXIA [None]
  - EYE SWELLING [None]
  - PRODUCT QUALITY ISSUE [None]
  - NASAL DISCOMFORT [None]
  - OCULAR HYPERAEMIA [None]
  - OROPHARYNGEAL PAIN [None]
